FAERS Safety Report 8513276-6 (Version None)
Quarter: 2012Q3

REPORT INFORMATION
  Report Type: 
  Country: None (occurrence: None)
  Receive Date: 20120716
  Receipt Date: 20120713
  Transmission Date: 20120928
  Serious: Yes (Other)
  Sender: FDA-Public Use
  Company Number: US-BAYER-2012-060009

PATIENT
  Age: 48 Year
  Sex: Female
  Weight: 59 kg

DRUGS (12)
  1. DULCOLAX [DOCUSATE SODIUM] [Concomitant]
     Indication: CONSTIPATION
     Dosage: 1 DF, QD
     Dates: start: 20120101
  2. LOVAZA [Concomitant]
     Dosage: 1 DF, QD
     Dates: start: 20120101
  3. STOOL SOFTENER [Concomitant]
     Indication: CONSTIPATION
     Dosage: 2 DF, QD
     Dates: start: 20090101
  4. MULTIVITAMIN PREPARATION + MINERAL SUPPLEMENT [Concomitant]
     Dosage: 2 DF, QD
  5. KEPPRA [Concomitant]
     Indication: CONVULSION
     Dosage: 2 DF, QD
     Dates: start: 20111201
  6. CALCIUM WITH VITAMIN D [Concomitant]
     Indication: OSTEOPENIA
     Dosage: 600 MG, BID
     Dates: start: 20100101
  7. BETASERON [Suspect]
     Indication: MULTIPLE SCLEROSIS
     Dosage: UNK, QOD
     Route: 058
     Dates: start: 20120101, end: 20120501
  8. LISINOPRIL [Concomitant]
     Indication: HYPERTENSION
     Dosage: 10 MG, QD
  9. OMEPRAZOLE [Concomitant]
     Indication: GASTROOESOPHAGEAL REFLUX DISEASE
     Dosage: 1 DF, QD
  10. AMPYRA [Concomitant]
     Indication: GAIT DISTURBANCE
     Dosage: 1 DF, QD
     Dates: start: 20100101
  11. PAXIL [Concomitant]
     Indication: ANXIETY
     Dosage: UNK
  12. PAXIL [Concomitant]
     Indication: DEPRESSION

REACTIONS (2)
  - MULTIPLE SCLEROSIS RELAPSE [None]
  - MULTIPLE SCLEROSIS [None]
